FAERS Safety Report 9397482 (Version 1)
Quarter: 2013Q3

REPORT INFORMATION
  Report Type: Spontaneous
  Country: JP (occurrence: JP)
  Receive Date: 20130712
  Receipt Date: 20130712
  Transmission Date: 20140515
  Serious: Yes (Other)
  Sender: FDA-Public Use
  Company Number: JP-ASTRAZENECA-2013SE50679

PATIENT
  Age: 0 Year
  Sex: 0

DRUGS (1)
  1. ANAPEINE [Suspect]
     Indication: POSTOPERATIVE ANALGESIA
     Route: 008
     Dates: start: 20130626, end: 20130626

REACTIONS (1)
  - Convulsion neonatal [Recovering/Resolving]
